FAERS Safety Report 13045100 (Version 1)
Quarter: 2016Q4

REPORT INFORMATION
  Report Type: Spontaneous
  Country: DK (occurrence: DK)
  Receive Date: 20161220
  Receipt Date: 20161220
  Transmission Date: 20170207
  Serious: Yes (Hospitalization)
  Sender: FDA-Public Use
  Company Number: PHHY2016DK169910

PATIENT
  Age: 24 Year
  Sex: Female
  Weight: 77 kg

DRUGS (1)
  1. MALONETTA [Suspect]
     Active Substance: ETHINYL ESTRADIOL\LEVONORGESTREL
     Indication: PRODUCT USED FOR UNKNOWN INDICATION
     Dosage: STRENGTH: 150+30 MICRORAM.
     Route: 048

REACTIONS (10)
  - Visual impairment [Not Recovered/Not Resolved]
  - Dizziness [Not Recovered/Not Resolved]
  - Hyperacusis [Recovered/Resolved]
  - Vomiting [Recovered/Resolved]
  - Hemiparesis [Recovered/Resolved]
  - Nausea [Recovered/Resolved]
  - Coordination abnormal [Recovered/Resolved]
  - Intracranial venous sinus thrombosis [Recovered/Resolved with Sequelae]
  - Photophobia [Recovered/Resolved]
  - Headache [Recovered/Resolved]

NARRATIVE: CASE EVENT DATE: 20140609
